FAERS Safety Report 8469828-5 (Version None)
Quarter: 2012Q2

REPORT INFORMATION
  Report Type: 
  Country: None (occurrence: None)
  Receive Date: 20120626
  Receipt Date: 20120620
  Transmission Date: 20120825
  Serious: Yes (Hospitalization)
  Sender: FDA-Public Use
  Company Number: DE-TEVA-344469GER

PATIENT
  Sex: Female
  Weight: 56 kg

DRUGS (5)
  1. LAPATINIB [Suspect]
     Indication: BREAST CANCER
     Dosage: 500 MILLIGRAM;
     Route: 048
     Dates: start: 20120202
  2. TRASTUZUMAB [Suspect]
     Indication: BREAST CANCER
     Route: 042
     Dates: start: 20120202
  3. CARBOPLATIN [Suspect]
     Indication: BREAST CANCER
     Dosage: 2 AUC
     Route: 042
     Dates: start: 20120202
  4. DOXORUBICIN HCL [Suspect]
     Indication: BREAST CANCER
     Route: 042
     Dates: start: 20120202
  5. PACLITAXEL [Suspect]
     Indication: BREAST CANCER
     Route: 042
     Dates: start: 20120202

REACTIONS (1)
  - PANCYTOPENIA [None]
